FAERS Safety Report 24198111 (Version 1)
Quarter: 2024Q3

REPORT INFORMATION
  Report Type: Spontaneous
  Country: PT (occurrence: PT)
  Receive Date: 20240812
  Receipt Date: 20240812
  Transmission Date: 20241017
  Serious: Yes (Other)
  Sender: MSN LABORATORIES
  Company Number: PT-PFIZER INC-PV202300137213

PATIENT

DRUGS (26)
  1. LACOSAMIDE [Suspect]
     Active Substance: LACOSAMIDE
     Indication: Epilepsia partialis continua
     Dosage: 200 MG BID
     Route: 065
  2. LACOSAMIDE [Suspect]
     Active Substance: LACOSAMIDE
     Indication: Encephalitis
  3. LACOSAMIDE [Suspect]
     Active Substance: LACOSAMIDE
     Indication: Extragonadal primary seminoma (pure)
  4. CLOBAZAM [Suspect]
     Active Substance: CLOBAZAM
     Indication: Epilepsia partialis continua
     Dosage: 20 MG
     Route: 065
  5. CLOBAZAM [Suspect]
     Active Substance: CLOBAZAM
     Indication: Extragonadal primary seminoma (pure)
  6. CLOBAZAM [Suspect]
     Active Substance: CLOBAZAM
     Indication: Encephalitis
  7. AZATHIOPRINE [Suspect]
     Active Substance: AZATHIOPRINE
     Indication: Encephalitis
     Dosage: 150 MG, DAILY
     Route: 065
  8. AZATHIOPRINE [Suspect]
     Active Substance: AZATHIOPRINE
     Indication: Extragonadal primary seminoma (pure)
  9. AZATHIOPRINE [Suspect]
     Active Substance: AZATHIOPRINE
     Indication: Epilepsia partialis continua
  10. HUMAN IMMUNOGLOBULIN G [Suspect]
     Active Substance: HUMAN IMMUNOGLOBULIN G
     Indication: Encephalitis
     Dosage: MONTHLY
     Route: 042
  11. HUMAN IMMUNOGLOBULIN G [Suspect]
     Active Substance: HUMAN IMMUNOGLOBULIN G
     Indication: Extragonadal primary seminoma (pure)
     Dosage: 2G/KG (2-DAY COURSE)
     Route: 042
  12. HUMAN IMMUNOGLOBULIN G [Suspect]
     Active Substance: HUMAN IMMUNOGLOBULIN G
     Indication: Epilepsia partialis continua
  13. METHYLPREDNISOLONE SODIUM SUCCINATE [Suspect]
     Active Substance: METHYLPREDNISOLONE SODIUM SUCCINATE
     Indication: Extragonadal primary seminoma (pure)
     Dosage: 1 G (5-DAY COURSE)
     Route: 042
  14. METHYLPREDNISOLONE SODIUM SUCCINATE [Suspect]
     Active Substance: METHYLPREDNISOLONE SODIUM SUCCINATE
     Indication: Epilepsia partialis continua
  15. METHYLPREDNISOLONE SODIUM SUCCINATE [Suspect]
     Active Substance: METHYLPREDNISOLONE SODIUM SUCCINATE
     Indication: Encephalitis
  16. PERAMPANEL [Suspect]
     Active Substance: PERAMPANEL
     Indication: Epilepsia partialis continua
     Dosage: 8 MG
     Route: 065
  17. PERAMPANEL [Suspect]
     Active Substance: PERAMPANEL
     Indication: Encephalitis
  18. PREDNISONE [Suspect]
     Active Substance: PREDNISONE
     Indication: Extragonadal primary seminoma (pure)
     Dosage: 40 MG
     Route: 048
  19. PREDNISONE [Suspect]
     Active Substance: PREDNISONE
     Indication: Encephalitis
  20. PREDNISONE [Suspect]
     Active Substance: PREDNISONE
     Indication: Epilepsia partialis continua
  21. RITUXIMAB [Suspect]
     Active Substance: RITUXIMAB
     Indication: Extragonadal primary seminoma (pure)
     Dosage: 375 MG/M2
     Route: 042
  22. RITUXIMAB [Suspect]
     Active Substance: RITUXIMAB
     Indication: Encephalitis
  23. RITUXIMAB [Suspect]
     Active Substance: RITUXIMAB
     Indication: Epilepsia partialis continua
  24. VALPROIC ACID [Suspect]
     Active Substance: VALPROIC ACID
     Indication: Extragonadal primary seminoma (pure)
     Dosage: 40 MG/KG
     Route: 065
  25. VALPROIC ACID [Suspect]
     Active Substance: VALPROIC ACID
     Indication: Encephalitis
  26. VALPROIC ACID [Suspect]
     Active Substance: VALPROIC ACID
     Indication: Epilepsia partialis continua

REACTIONS (3)
  - Drug ineffective for unapproved indication [Unknown]
  - Disease progression [Unknown]
  - Off label use [Unknown]
